FAERS Safety Report 5879449-6 (Version None)
Quarter: 2008Q3

REPORT INFORMATION
  Report Type: 
  Country: None (occurrence: None)
  Receive Date: 20080912
  Receipt Date: 20080911
  Transmission Date: 20090109
  Serious: Yes (Hospitalization)
  Sender: FDA-Public Use
  Company Number: D0058691A

PATIENT
  Sex: Female

DRUGS (2)
  1. ELONTRIL [Suspect]
     Dosage: 150MG PER DAY
     Route: 048
  2. TREVILOR [Concomitant]
     Route: 065

REACTIONS (3)
  - ANXIETY DISORDER [None]
  - HYPERTENSIVE CRISIS [None]
  - PSORIASIS [None]
